FAERS Safety Report 4504165-2 (Version None)
Quarter: 2004Q4

REPORT INFORMATION
  Report Type: 
  Country: None (occurrence: None)
  Receive Date: 20041115
  Receipt Date: 20041102
  Transmission Date: 20050328
  Serious: No
  Sender: FDA-Public Use
  Company Number: 2004-BP-10392BP

PATIENT
  Age: 79 Year
  Sex: Male

DRUGS (7)
  1. COMBIVENT [Suspect]
     Indication: CHRONIC OBSTRUCTIVE AIRWAYS DISEASE
     Dosage: 8 PUF (SEE TEXT, 2 PUFFS 4X/DAY (18 MCG/103 MCG)), IH
     Route: 055
  2. NEBULIZER [Concomitant]
  3. PREVACID [Concomitant]
  4. THEOPHYLLINE [Concomitant]
  5. PAXIL [Concomitant]
  6. PRAVACHOL [Concomitant]
  7. FLOMAX [Concomitant]

REACTIONS (3)
  - DRUG EFFECT DECREASED [None]
  - DYSGEUSIA [None]
  - PHARMACEUTICAL PRODUCT COMPLAINT [None]
